FAERS Safety Report 24324054 (Version 1)
Quarter: 2024Q3

REPORT INFORMATION
  Report Type: Spontaneous
  Country: FR (occurrence: FR)
  Receive Date: 20240916
  Receipt Date: 20240916
  Transmission Date: 20241016
  Serious: Yes (Death, Hospitalization)
  Sender: INCYTE
  Company Number: FR-002147023-NVSC2024FR182964

PATIENT

DRUGS (1)
  1. RUXOLITINIB [Suspect]
     Active Substance: RUXOLITINIB
     Indication: Myelofibrosis
     Dosage: 20 MG
     Route: 065

REACTIONS (4)
  - Death [Fatal]
  - Clumsiness [Unknown]
  - Fall [Unknown]
  - Fracture [Unknown]
